FAERS Safety Report 24594750 (Version 1)
Quarter: 2024Q4

REPORT INFORMATION
  Report Type: Spontaneous
  Country: US (occurrence: None)
  Receive Date: 20241108
  Receipt Date: 20241108
  Transmission Date: 20250114
  Serious: Yes (Other)
  Sender: Public
  Company Number: None

PATIENT
  Age: 22 Year
  Sex: Male
  Weight: 74.16 kg

DRUGS (16)
  1. GRANIX [Suspect]
     Active Substance: TBO-FILGRASTIM
     Indication: Neutropenia
     Dosage: OTHER QUANTITY : 1 INJECTION(S);?OTHER FREQUENCY : ONE TIME;?
     Route: 030
     Dates: start: 20241107, end: 20241107
  2. Loop recorder implant [Concomitant]
  3. PROGRAF [Concomitant]
  4. MYFORTIC [Concomitant]
     Active Substance: MYCOPHENOLATE SODIUM
  5. PREDNISONE [Concomitant]
     Active Substance: PREDNISONE
  6. BACTRIM [Concomitant]
     Active Substance: SULFAMETHOXAZOLE\TRIMETHOPRIM
  7. PROTONIX [Concomitant]
     Active Substance: PANTOPRAZOLE SODIUM
  8. SODIUM BICARBONATE [Concomitant]
  9. METOPROLOL [Concomitant]
     Active Substance: METOPROLOL
  10. K Phos [Concomitant]
  11. NIFEDIPINE [Concomitant]
  12. 81mg aspirin [Concomitant]
  13. VITAMINS [Concomitant]
     Active Substance: VITAMINS
  14. MAGNESIUM OXIDE [Concomitant]
  15. probiotic acidophilus [Concomitant]
  16. psyllium daily fiber [Concomitant]

REACTIONS (4)
  - Dyskinesia [None]
  - Back pain [None]
  - Pain in extremity [None]
  - Sleep disorder [None]

NARRATIVE: CASE EVENT DATE: 20241107
